FAERS Safety Report 15221300 (Version 2)
Quarter: 2018Q3

REPORT INFORMATION
  Report Type: Spontaneous
  Country: US (occurrence: US)
  Receive Date: 20180731
  Receipt Date: 20180814
  Transmission Date: 20181010
  Serious: Yes (Other)
  Sender: FDA-Public Use
  Company Number: US-ABBVIE-18P-163-2436018-00

PATIENT
  Age: 21 Month
  Sex: Female

DRUGS (1)
  1. ANDROGEL [Suspect]
     Active Substance: TESTOSTERONE
     Indication: GENDER REASSIGNMENT THERAPY
     Route: 061

REACTIONS (8)
  - Dysphonia [Unknown]
  - Gender dysphoria [Unknown]
  - Off label use [Unknown]
  - Enlarged clitoris [Unknown]
  - Weight increased [Unknown]
  - Body height increased [Unknown]
  - Increased appetite [Unknown]
  - Body mass index increased [Unknown]
